FAERS Safety Report 16854964 (Version 1)
Quarter: 2019Q3

REPORT INFORMATION
  Report Type: Spontaneous
  Country: CH (occurrence: US)
  Receive Date: 20190926
  Receipt Date: 20190926
  Transmission Date: 20191005
  Serious: Yes (Hospitalization)
  Sender: FDA-Public Use
  Company Number: CH-ALK-ABELLO A/S-2019AA003208

PATIENT

DRUGS (1)
  1. GRASTEK [Suspect]
     Active Substance: PHLEUM PRATENSE POLLEN
     Indication: PRODUCT USED FOR UNKNOWN INDICATION
     Dosage: 75000 SQ-T
     Route: 060
     Dates: end: 201408

REACTIONS (3)
  - Cough [Recovered/Resolved]
  - Swollen tongue [Recovered/Resolved]
  - Pruritus [Recovered/Resolved]
